FAERS Safety Report 12282114 (Version 2)
Quarter: 2016Q2

REPORT INFORMATION
  Report Type: Spontaneous
  Country: US (occurrence: US)
  Receive Date: 20160419
  Receipt Date: 20160422
  Transmission Date: 20160815
  Serious: No
  Sender: FDA-Public Use
  Company Number: US-PFIZER INC-2016221220

PATIENT
  Age: 52 Year
  Sex: Female
  Weight: 68 kg

DRUGS (3)
  1. ESTRING [Suspect]
     Active Substance: ESTRADIOL
     Indication: HORMONE REPLACEMENT THERAPY
     Dosage: 1 DF (1 RING), EVERY 3 MONTHS (EVERY 90 DAYS)
     Route: 067
     Dates: start: 2015, end: 201603
  2. LEVOTHYROXINE. [Concomitant]
     Active Substance: LEVOTHYROXINE
     Indication: THYROID DISORDER
     Dosage: UNK
     Dates: start: 2014
  3. ESTRING [Suspect]
     Active Substance: ESTRADIOL
     Dosage: 1 DF (1 RING), EVERY 3 MONTHS (EVERY 90 DAYS)
     Route: 067
     Dates: start: 201604

REACTIONS (2)
  - Vulvovaginal mycotic infection [Not Recovered/Not Resolved]
  - Dyspareunia [Unknown]

NARRATIVE: CASE EVENT DATE: 201603
